FAERS Safety Report 9290956 (Version 1)
Quarter: 2013Q2

REPORT INFORMATION
  Report Type: Spontaneous
  Country: FR (occurrence: FR)
  Receive Date: 20130515
  Receipt Date: 20130515
  Transmission Date: 20140414
  Serious: Yes (Hospitalization)
  Sender: FDA-Public Use
  Company Number: FR-ASTRAZENECA-2013SE31833

PATIENT
  Age: 52 Year
  Sex: Female

DRUGS (2)
  1. CARBOCAINE [Suspect]
     Indication: NERVE BLOCK
     Route: 053
     Dates: start: 20120927, end: 20120927
  2. BISOPROLOL [Concomitant]
     Indication: MIGRAINE

REACTIONS (5)
  - Accidental overdose [Recovered/Resolved]
  - Confusional state [Recovered/Resolved]
  - Depressed level of consciousness [Recovered/Resolved]
  - Tachycardia [Recovered/Resolved]
  - Hypertension [Recovered/Resolved]
